FAERS Safety Report 9134437 (Version 1)
Quarter: 2013Q1

REPORT INFORMATION
  Report Type: Spontaneous
  Country: NO (occurrence: NO)
  Receive Date: 20130304
  Receipt Date: 20130304
  Transmission Date: 20140127
  Serious: Yes (Disabling)
  Sender: FDA-Public Use
  Company Number: NO-GE HEALTHCARE MEDICAL DIAGNOSTICS-OSCN-NO-1302S-0015

PATIENT
  Age: 75 None
  Sex: Female

DRUGS (5)
  1. OMNISCAN [Suspect]
     Indication: BACK PAIN
     Route: 042
     Dates: start: 20080115, end: 20080115
  2. OMNISCAN [Suspect]
     Indication: DIAGNOSTIC PROCEDURE
  3. FLUNIPAM [Concomitant]
     Dates: start: 2005
  4. PARALGIN FORTE [Concomitant]
     Dates: start: 1997
  5. SOMADRIL [Concomitant]
     Dates: start: 1997

REACTIONS (3)
  - Alopecia [Not Recovered/Not Resolved]
  - Pain of skin [Not Recovered/Not Resolved]
  - Alopecia [Not Recovered/Not Resolved]
